FAERS Safety Report 5122753-X (Version None)
Quarter: 2006Q4

REPORT INFORMATION
  Report Type: 
  Country: None (occurrence: None)
  Receive Date: 20061004
  Receipt Date: 20060829
  Transmission Date: 20070319
  Serious: Yes (Hospitalization, Other)
  Sender: FDA-Public Use
  Company Number: 2004-09-1362

PATIENT
  Age: 57 Year
  Sex: Male
  Weight: 95 kg

DRUGS (7)
  1. PEG-INTRON [Suspect]
     Indication: HEPATITIS C
     Dosage: 50 MCG; QW; SC; SEE IMAGE
     Route: 058
     Dates: start: 20040730, end: 20040910
  2. PEG-INTRON [Suspect]
     Indication: HEPATITIS C
     Dosage: 50 MCG; QW; SC; SEE IMAGE
     Route: 058
     Dates: start: 20040601
  3. PEG-INTRON [Suspect]
     Indication: HEPATITIS C
     Dosage: 50 MCG; QW; SC; SEE IMAGE
     Route: 058
     Dates: start: 20040730
  4. PEG-INTRON [Suspect]
     Indication: HEPATITIS C
     Dosage: 50 MCG; QW; SC; SEE IMAGE
     Route: 058
     Dates: start: 20041001
  5. NIFEDIPINE [Concomitant]
  6. SPIRONOLACTONE [Concomitant]
  7. ATENOLOL [Concomitant]

REACTIONS (9)
  - BRONCHITIS CHRONIC [None]
  - CHRONIC OBSTRUCTIVE PULMONARY DISEASE [None]
  - CONDITION AGGRAVATED [None]
  - DYSPNOEA [None]
  - HAEMOPTYSIS [None]
  - LUNG ABSCESS [None]
  - LUNG DISORDER [None]
  - PLATELET COUNT DECREASED [None]
  - PNEUMONITIS [None]
